FAERS Safety Report 8919286 (Version 1)
Quarter: 2012Q4

REPORT INFORMATION
  Report Type: 
  Country: FR (occurrence: FR)
  Receive Date: 20121121
  Receipt Date: 20121121
  Transmission Date: 20130627
  Serious: Yes (Death)
  Sender: FDA-Public Use
  Company Number: FR-SANOFI-AVENTIS-2012SA082925

PATIENT
  Age: 70 Year
  Sex: Female
  Weight: 50 kg

DRUGS (23)
  1. PLAQUENIL [Suspect]
     Indication: LUPUS SYNDROME
     Dosage: 200 mg or 180 mg
     Route: 065
     Dates: start: 19880101, end: 201202
  2. PLAQUENIL [Suspect]
     Indication: LUPUS SYNDROME
     Dosage: if periods
     Route: 065
     Dates: end: 20120822
  3. NEORAL [Suspect]
     Indication: RENAL TRANSPLANT
     Dosage: sometimes 180 mg
     Route: 065
     Dates: start: 20110928, end: 20120415
  4. MYFORTIC [Concomitant]
     Indication: RENAL TRANSPLANT
     Dates: start: 201109, end: 201202
  5. MYFORTIC [Concomitant]
     Indication: RENAL TRANSPLANT
  6. MYFORTIC [Concomitant]
     Indication: RENAL TRANSPLANT
  7. EUROBIOL [Concomitant]
     Indication: PANCREATITIS
  8. PREDNISOLONE [Concomitant]
  9. PREDNISOLONE [Concomitant]
  10. ZOLOFT [Concomitant]
  11. LASILIX [Concomitant]
  12. LASILIX [Concomitant]
  13. BACTRIM [Concomitant]
  14. ROSUVASTATIN [Concomitant]
  15. TAHOR [Concomitant]
  16. INEXIUM [Concomitant]
     Route: 048
  17. KARDEGIC [Concomitant]
     Route: 048
  18. ARANESP [Concomitant]
     Route: 048
  19. AMLODIPINE [Concomitant]
  20. FERROUS SULFATE [Concomitant]
  21. SIMULECT [Concomitant]
     Dates: end: 201202
  22. MYFORTIC [Concomitant]
     Dates: end: 201202
  23. CYSTINE [Concomitant]

REACTIONS (2)
  - Hypertrophic cardiomyopathy [Fatal]
  - Myocardial fibrosis [Fatal]
